FAERS Safety Report 17821591 (Version 1)
Quarter: 2020Q2

REPORT INFORMATION
  Report Type: Other
  Country: FR (occurrence: FR)
  Receive Date: 20200525
  Receipt Date: 20200525
  Transmission Date: 20200714
  Serious: Yes (Hospitalization, Other)
  Sender: FDA-Public Use
  Company Number: FR-TOLMAR, INC.-20FR021439

PATIENT
  Age: 57 Year
  Sex: Male
  Weight: 78 kg

DRUGS (11)
  1. ELIGARD [Suspect]
     Active Substance: LEUPROLIDE ACETATE
     Indication: HORMONE-DEPENDENT PROSTATE CANCER
     Dosage: 1 DOSAGE FORM, Q 6 MONTH
     Route: 058
     Dates: start: 201808
  2. ZIEXTENZO [Suspect]
     Active Substance: PEGFILGRASTIM-BMEZ
     Indication: NEUTROPENIA
     Dosage: 1 DOSAGE FORM, CYCLIC
     Route: 058
     Dates: start: 202002
  3. SOLUPRED [PREDNISOLONE METASULFOBENZOATE SODIUM] [Suspect]
     Active Substance: PREDNISOLONE SODIUM METAZOATE
     Indication: PRODUCT USED FOR UNKNOWN INDICATION
     Dosage: 10 MG, QD
     Route: 048
     Dates: start: 201903
  4. CANDESARTAN CILEXETIL. [Suspect]
     Active Substance: CANDESARTAN CILEXETIL
     Indication: PREMEDICATION
     Dosage: 8 MG, CYCLIC
     Route: 048
     Dates: start: 20200224
  5. JEVTANA [Suspect]
     Active Substance: CABAZITAXEL
     Indication: PROSTATE CANCER METASTATIC
     Dosage: 1 UNKNOWN, CYCLIC
     Route: 048
     Dates: start: 20200224
  6. AZANTAC [Suspect]
     Active Substance: RANITIDINE HYDROCHLORIDE
     Indication: PREMEDICATION
     Dosage: 50 MG, CYCLIC
     Route: 042
     Dates: start: 20200224
  7. POLARAMINE [Suspect]
     Active Substance: DEXCHLORPHENIRAMINE MALEATE
     Indication: PREMEDICATION
     Dosage: 5 MG, CYCLIC
     Route: 042
     Dates: start: 20200224
  8. DEXAMETHASONE PHOSPHATE SODIUM [Suspect]
     Active Substance: DEXAMETHASONE SODIUM PHOSPHATE
     Indication: PREMEDICATION
     Dosage: 8 MG, CYCLIC
     Route: 042
     Dates: start: 20200224
  9. EMEND [Suspect]
     Active Substance: APREPITANT
     Indication: PREMEDICATION
     Dosage: 1 DOSAGE FORM, CYCLIC
     Route: 048
     Dates: start: 202002
  10. XGEVA [Suspect]
     Active Substance: DENOSUMAB
     Indication: BONE NEOPLASM
     Dosage: 1 DOSAGE FORM, Q 1 MONTH
     Route: 058
     Dates: start: 201903
  11. CACIT VITAMINE D3 [Suspect]
     Active Substance: CALCIUM CARBONATE\CHOLECALCIFEROL
     Indication: OSTEOPOROSIS
     Dosage: 1 DOSAGE FORM, QD
     Route: 048
     Dates: start: 201903

REACTIONS (1)
  - Pulmonary embolism [Recovering/Resolving]

NARRATIVE: CASE EVENT DATE: 20200417
